FAERS Safety Report 5557055-0 (Version None)
Quarter: 2007Q4

REPORT INFORMATION
  Report Type: 
  Country: None (occurrence: None)
  Receive Date: 20071214
  Receipt Date: 20071212
  Transmission Date: 20080405
  Serious: Yes (Hospitalization, Disabling, Other)
  Sender: FDA-Public Use
  Company Number: US-WYE-H00646807

PATIENT
  Sex: Male
  Weight: 83.99 kg

DRUGS (2)
  1. TORISEL [Suspect]
     Indication: RENAL CELL CARCINOMA STAGE UNSPECIFIED
     Dosage: RECEIVED 2 DOSES, 25 MG OVER 30 MINUTES
     Route: 042
     Dates: start: 20070817, end: 20070827
  2. AMBIEN [Concomitant]
     Indication: SOMNOLENCE
     Dosage: 12.5 MG AS NEEDED AT BEDTIME
     Route: 048

REACTIONS (1)
  - RETINAL ARTERY OCCLUSION [None]
